FAERS Safety Report 5285317-3 (Version None)
Quarter: 2007Q2

REPORT INFORMATION
  Report Type: 
  Country: None (occurrence: None)
  Receive Date: 20070403
  Receipt Date: 20070326
  Transmission Date: 20071010
  Serious: Yes (Hospitalization)
  Sender: FDA-Public Use
  Company Number: ES-PFIZER INC-2007023993

PATIENT
  Age: 85 Year
  Sex: Female

DRUGS (4)
  1. ALDACTONE [Interacting]
     Indication: HYPERTENSION
     Route: 048
  2. SEGURIL [Suspect]
     Indication: HYPERTENSION
     Route: 048
  3. ATENOLOL [Concomitant]
     Indication: ARRHYTHMIA
     Dosage: DAILY DOSE:12MG
     Route: 048
  4. ADIRO [Concomitant]
     Dosage: DAILY DOSE:100MG
     Route: 048

REACTIONS (2)
  - DRUG INTERACTION [None]
  - RENAL FAILURE ACUTE [None]
